FAERS Safety Report 11177014 (Version 1)
Quarter: 2015Q2

REPORT INFORMATION
  Report Type: Spontaneous
  Country: US (occurrence: None)
  Receive Date: 20150515
  Receipt Date: 20150515
  Transmission Date: 20150821
  Serious: Yes (Hospitalization)
  Sender: FDA-Public Use
  Company Number: 2015006157

PATIENT
  Sex: Female

DRUGS (9)
  1. CYCLOBENZAPRINE (CYCLOBENZAPRINE) [Concomitant]
     Active Substance: CYCLOBENZAPRINE
  2. KLONOPIN [Concomitant]
     Active Substance: CLONAZEPAM
  3. CIMZIA [Suspect]
     Active Substance: CERTOLIZUMAB PEGOL
     Indication: RHEUMATOID ARTHRITIS
     Route: 058
     Dates: start: 20140313, end: 20140327
  4. LYRICA [Concomitant]
     Active Substance: PREGABALIN
  5. CYMBALTA [Concomitant]
     Active Substance: DULOXETINE HYDROCHLORIDE
  6. SYNTHROID [Concomitant]
     Active Substance: LEVOTHYROXINE SODIUM
  7. PERCOCET (OXYCODONE HYDROCHLORIDE, PARACETAMOL) [Concomitant]
  8. METHOTREXATE (METHOTREXATE) [Concomitant]
     Active Substance: METHOTREXATE
  9. LIPITOR [Concomitant]
     Active Substance: ATORVASTATIN CALCIUM

REACTIONS (4)
  - Syncope [None]
  - Diarrhoea [None]
  - Hypotension [None]
  - Vomiting [None]
